FAERS Safety Report 8163951-0 (Version None)
Quarter: 2012Q1

REPORT INFORMATION
  Report Type: 
  Country: None (occurrence: None)
  Receive Date: 20120224
  Receipt Date: 20120217
  Transmission Date: 20120608
  Serious: Yes (Hospitalization)
  Sender: FDA-Public Use
  Company Number: GB-JNJFOC-20120101254

PATIENT
  Sex: Male
  Weight: 114 kg

DRUGS (8)
  1. USTEKINUMAB [Suspect]
     Indication: PSORIASIS
     Route: 058
     Dates: start: 20100929
  2. TERAZOSIN HCL [Concomitant]
     Route: 065
     Dates: start: 20110610
  3. CODEINE PHOSPHATE [Concomitant]
     Route: 065
     Dates: start: 20110619
  4. ACETAMINOPHEN [Concomitant]
     Route: 065
     Dates: start: 20110610
  5. OMEPRAZOLE [Concomitant]
     Route: 065
     Dates: start: 20100106
  6. ASPIRIN [Concomitant]
     Dates: start: 20110619
  7. QUININE SULFATE [Concomitant]
     Dates: start: 20110610
  8. RIFAMPIN AND ISONIAZID [Concomitant]
     Route: 065
     Dates: start: 20100712

REACTIONS (4)
  - UPPER LIMB FRACTURE [None]
  - RIB FRACTURE [None]
  - GAIT DISTURBANCE [None]
  - FALL [None]
